FAERS Safety Report 14559085 (Version 1)
Quarter: 2018Q1

REPORT INFORMATION
  Report Type: Spontaneous
  Country: US (occurrence: US)
  Receive Date: 20180221
  Receipt Date: 20180221
  Transmission Date: 20180509
  Serious: Yes (Hospitalization)
  Sender: FDA-Public Use
  Company Number: US-ACTELION-A-US2018-167741

PATIENT
  Age: 71 Year
  Sex: Male
  Weight: 75.74 kg

DRUGS (3)
  1. SILDENAFIL CITRATE. [Concomitant]
     Active Substance: SILDENAFIL CITRATE
  2. ELIQUIS [Concomitant]
     Active Substance: APIXABAN
  3. VELETRI [Suspect]
     Active Substance: EPOPROSTENOL
     Indication: PULMONARY ARTERIAL HYPERTENSION
     Dosage: 13.5 NG/KG, PER MIN
     Route: 042

REACTIONS (6)
  - Device dislocation [Unknown]
  - Therapy cessation [Unknown]
  - Syncope [Unknown]
  - Catheter site inflammation [Unknown]
  - Catheter site pruritus [Unknown]
  - Catheter management [Unknown]
